FAERS Safety Report 7938732-0 (Version None)
Quarter: 2011Q4

REPORT INFORMATION
  Report Type: 
  Country: None (occurrence: None)
  Receive Date: 20111124
  Receipt Date: 20111115
  Transmission Date: 20120403
  Serious: Yes (Hospitalization)
  Sender: FDA-Public Use
  Company Number: US-BIOGENIDEC-2011BI044438

PATIENT
  Age: 64 Year
  Sex: Female

DRUGS (4)
  1. AMBIEN [Concomitant]
  2. XANAX [Concomitant]
  3. AVONEX [Suspect]
     Indication: MULTIPLE SCLEROSIS
     Route: 030
     Dates: start: 20070101
  4. NEURONTIN [Concomitant]

REACTIONS (1)
  - DIVERTICULITIS [None]
